FAERS Safety Report 9299456 (Version 1)
Quarter: 2013Q2

REPORT INFORMATION
  Report Type: Spontaneous
  Country: US (occurrence: US)
  Receive Date: 20130521
  Receipt Date: 20130521
  Transmission Date: 20140414
  Serious: Yes (Life-Threatening, Hospitalization, Other)
  Sender: FDA-Public Use
  Company Number: US-009507513-1305USA010490

PATIENT
  Age: 5 Year
  Sex: Female

DRUGS (2)
  1. SINGULAIR [Suspect]
     Indication: ASTHMA
     Dosage: 4 MG, DAILY
     Route: 048
  2. SINGULAIR [Suspect]
     Indication: RHINITIS

REACTIONS (12)
  - Skull fracture [Unknown]
  - Personality change [Unknown]
  - Muscle rigidity [Unknown]
  - Logorrhoea [Unknown]
  - Fall [Unknown]
  - Emotional disorder [Unknown]
  - Abnormal behaviour [Unknown]
  - Poor quality sleep [Unknown]
  - Depressed mood [Unknown]
  - Nightmare [Unknown]
  - Convulsion [Unknown]
  - Somnolence [Unknown]
